FAERS Safety Report 21394220 (Version 2)
Quarter: 2022Q4

REPORT INFORMATION
  Report Type: Report from Study
  Country: AR (occurrence: AR)
  Receive Date: 20220930
  Receipt Date: 20221010
  Transmission Date: 20230112
  Serious: Yes (Death)
  Sender: FDA-Public Use
  Company Number: AR-ABBVIE-21K-007-4047388-00

PATIENT
  Age: 59 Year
  Sex: Female

DRUGS (1)
  1. HUMIRA [Suspect]
     Active Substance: ADALIMUMAB
     Indication: Rheumatoid arthritis
     Route: 058
     Dates: start: 20190923

REACTIONS (6)
  - Cardiac arrest [Fatal]
  - Skin lesion [Unknown]
  - Inflammation [Unknown]
  - Skin ulcer [Not Recovered/Not Resolved]
  - Gait inability [Unknown]
  - Infection [Unknown]

NARRATIVE: CASE EVENT DATE: 20210101
